FAERS Safety Report 4545751-3 (Version None)
Quarter: 2005Q1

REPORT INFORMATION
  Report Type: 
  Country: None (occurrence: None)
  Receive Date: 20050104
  Receipt Date: 20050104
  Transmission Date: 20050727
  Serious: No
  Sender: FDA-Public Use
  Company Number: None

PATIENT
  Sex: Male

DRUGS (3)
  1. PERCOCET [Suspect]
     Indication: ARTHRALGIA
     Dosage: ONE PO TID
     Route: 048
  2. PERCOCET [Suspect]
     Indication: MYOFASCIAL PAIN SYNDROME
     Dosage: ONE PO TID
     Route: 048
  3. PERCOCET [Suspect]
     Indication: OSTEOARTHRITIS
     Dosage: ONE PO TID
     Route: 048

REACTIONS (2)
  - DRUG EFFECT DECREASED [None]
  - PHARMACEUTICAL PRODUCT COMPLAINT [None]
